FAERS Safety Report 4659265-3 (Version None)
Quarter: 2005Q2

REPORT INFORMATION
  Report Type: 
  Country: None (occurrence: None)
  Receive Date: 20050511
  Receipt Date: 20050428
  Transmission Date: 20051028
  Serious: Yes (Other)
  Sender: FDA-Public Use
  Company Number: ES-AMGEN-UK129849

PATIENT
  Sex: Male

DRUGS (1)
  1. AMG 099073 [Suspect]
     Indication: HYPERPARATHYROIDISM SECONDARY
     Route: 048
     Dates: start: 20050201, end: 20050423

REACTIONS (3)
  - GASTRIC HAEMORRHAGE [None]
  - GASTRITIS EROSIVE [None]
  - METAPLASIA [None]
